FAERS Safety Report 17760961 (Version 1)
Quarter: 2020Q2

REPORT INFORMATION
  Report Type: Spontaneous
  Country: US (occurrence: US)
  Receive Date: 20200508
  Receipt Date: 20200508
  Transmission Date: 20200714
  Serious: Yes (Death, Hospitalization)
  Sender: FDA-Public Use
  Company Number: None

PATIENT
  Age: 76 Year
  Sex: Male
  Weight: 66 kg

DRUGS (12)
  1. MOMETASONE (NASAL) [Concomitant]
  2. ACETAMINOPHEN. [Concomitant]
     Active Substance: ACETAMINOPHEN
  3. KEYTRUDA [Suspect]
     Active Substance: PEMBROLIZUMAB
     Indication: SQUAMOUS CELL CARCINOMA
     Dosage: ?          OTHER FREQUENCY:EVERY 3 WEEKS;?
     Route: 042
     Dates: start: 20200313, end: 20200420
  4. FAMOTIDINE. [Concomitant]
     Active Substance: FAMOTIDINE
  5. BUDESONIDE-FORMOTEROL [Concomitant]
     Active Substance: BUDESONIDE\FORMOTEROL
  6. CHOLECALCIFEROL [Concomitant]
     Active Substance: CHOLECALCIFEROL
  7. MIDODRINE [Concomitant]
     Active Substance: MIDODRINE
  8. FINASTERIDE. [Concomitant]
     Active Substance: FINASTERIDE
  9. TAMSULOSIN [Concomitant]
     Active Substance: TAMSULOSIN
  10. TRIMETHOPRIM-SULFAMETHOXAZOLE [Concomitant]
     Active Substance: SULFAMETHOXAZOLE\TRIMETHOPRIM
  11. SERTRALINE [Concomitant]
     Active Substance: SERTRALINE HYDROCHLORIDE
  12. ALBUTEROL. [Concomitant]
     Active Substance: ALBUTEROL

REACTIONS (13)
  - Acute respiratory failure [None]
  - Hyponatraemia [None]
  - Diplopia [None]
  - Fatigue [None]
  - Asthenia [None]
  - Transaminases increased [None]
  - Inappropriate antidiuretic hormone secretion [None]
  - Aspiration [None]
  - Dysphagia [None]
  - Dyspnoea [None]
  - Pneumonia [None]
  - Autoimmune hepatitis [None]
  - Myasthenia gravis [None]

NARRATIVE: CASE EVENT DATE: 20200420
